FAERS Safety Report 22320680 (Version 1)
Quarter: 2023Q2

REPORT INFORMATION
  Report Type: Spontaneous
  Country: US (occurrence: None)
  Receive Date: 20230512
  Receipt Date: 20230512
  Transmission Date: 20230721
  Serious: Yes (Death)
  Sender: FDA-Public Use
  Company Number: None

PATIENT
  Sex: Male

DRUGS (2)
  1. PIRFENIDONE [Suspect]
     Active Substance: PIRFENIDONE
     Indication: Idiopathic pulmonary fibrosis
     Dosage: 801 MG ORAL??TAKE 1 TABLET BY MOUTH THREE TIMES DAILY
     Route: 048
     Dates: start: 20220823, end: 202303
  2. AMOXICILLIN [Concomitant]
     Active Substance: AMOXICILLIN

REACTIONS (1)
  - Death [None]
